FAERS Safety Report 5063357-7 (Version None)
Quarter: 2006Q3

REPORT INFORMATION
  Report Type: 
  Country: None (occurrence: None)
  Receive Date: 20060703
  Receipt Date: 20051116
  Transmission Date: 20061208
  Serious: Yes (Hospitalization)
  Sender: FDA-Public Use
  Company Number: 2005S1011239

PATIENT
  Age: 50 Year
  Sex: Male
  Weight: 113.3993 kg

DRUGS (1)
  1. CLOZAPINE [Suspect]
     Dosage: 400 MG;HS;ORAL
     Route: 048

REACTIONS (1)
  - GRANULOCYTOPENIA [None]
